FAERS Safety Report 7009948-5 (Version None)
Quarter: 2010Q3

REPORT INFORMATION
  Report Type: 
  Country: None (occurrence: None)
  Receive Date: 20100923
  Receipt Date: 20100913
  Transmission Date: 20110219
  Serious: Yes (Hospitalization)
  Sender: FDA-Public Use
  Company Number: US-SANOFI-AVENTIS-2010SA038152

PATIENT
  Age: 83 Year
  Sex: Male

DRUGS (4)
  1. PLAVIX [Suspect]
     Route: 048
     Dates: start: 20100601
  2. PLAVIX [Suspect]
     Route: 048
     Dates: start: 20100601
  3. ASPIRIN [Suspect]
     Route: 048
     Dates: start: 20100601
  4. ZOCOR [Suspect]
     Route: 048

REACTIONS (4)
  - ANGINA PECTORIS [None]
  - CARDIAC DISORDER [None]
  - GAIT DISTURBANCE [None]
  - PAIN IN EXTREMITY [None]
